FAERS Safety Report 7167480 (Version 6)
Quarter: 2012Q4

REPORT INFORMATION
  Report Type: 
  Country: US (occurrence: US)
  Receive Date: 20091105
  Receipt Date: 20120829
  Transmission Date: 20130627
  Serious: Yes (Hospitalization)
  Sender: FDA-Public Use
  Company Number: US-BAYER-200937373NA

PATIENT
  Age: 39 Year
  Sex: Female
  Weight: 65 kg

DRUGS (20)
  1. YASMIN [Suspect]
     Indication: CONTRACEPTION
     Route: 048
     Dates: start: 200105, end: 20061125
  2. PROZAC [Concomitant]
     Indication: DEPRESSION
  3. XANAX [Concomitant]
     Indication: ANXIETY
  4. VICODIN [Concomitant]
     Indication: CHEST PAIN
  5. ADVAIR [Concomitant]
  6. SINGULAIR [Concomitant]
  7. ROXICET [Concomitant]
     Dosage: 5/325
     Dates: start: 20060110
  8. CYCLOBENZAPRINE [Concomitant]
     Dates: start: 20060110
  9. DUAC [Concomitant]
     Dates: start: 20060110
  10. DUAC [Concomitant]
     Dates: start: 20060409
  11. DUAC [Concomitant]
     Dates: start: 20060915
  12. PATANOL [Concomitant]
     Dosage: As used dose: 0,1 %
     Dates: start: 20060614
  13. AMOXICILLIN TRIHYDRATE W/CLAVULANTE POTASSIUM [Concomitant]
     Dosage: 875-125 MG
     Dates: start: 20060912
  14. ZYRTEC [Concomitant]
     Dates: start: 20060912
  15. ZYRTEC [Concomitant]
     Dates: start: 20070817
  16. FLUTICASONE [Concomitant]
     Dates: start: 20060912
  17. FLUCONAZOLE [Concomitant]
     Dates: start: 20060921
  18. FLUCONAZOLE [Concomitant]
     Dates: start: 20061017
  19. FLUCONAZOLE [Concomitant]
     Dates: start: 20061019
  20. DUAC [Concomitant]
     Dosage: 1-5%
     Route: 061
     Dates: start: 20060915

REACTIONS (8)
  - Pulmonary embolism [Unknown]
  - Dyspnoea [Recovering/Resolving]
  - Chest pain [Unknown]
  - Bronchial hyperreactivity [Recovering/Resolving]
  - Wheezing [Recovering/Resolving]
  - Dyspnoea [Recovering/Resolving]
  - Cough [Recovering/Resolving]
  - Chest discomfort [Recovering/Resolving]
